FAERS Safety Report 5332768-4 (Version None)
Quarter: 2007Q2

REPORT INFORMATION
  Report Type: 
  Country: None (occurrence: None)
  Receive Date: 20070518
  Receipt Date: 20070507
  Transmission Date: 20071010
  Serious: Yes (Death, Life-Threatening, Hospitalization)
  Sender: FDA-Public Use
  Company Number: 16450

PATIENT
  Age: 69 Year
  Sex: Male

DRUGS (15)
  1. METHOTREXATE SODIUM [Suspect]
     Indication: ACUTE LYMPHOCYTIC LEUKAEMIA
     Dates: start: 20050209, end: 20050307
  2. VINCRISTINE [Suspect]
     Indication: ACUTE LYMPHOCYTIC LEUKAEMIA
     Dates: start: 20050209, end: 20050307
  3. DAUNORUBICIN HYDROCHLORIDE [Suspect]
     Indication: ACUTE LYMPHOCYTIC LEUKAEMIA
     Dates: start: 20050209, end: 20050307
  4. AMPHOTERICIN B [Suspect]
     Dates: start: 20050201, end: 20050201
  5. ASPARAGINASE [Suspect]
     Indication: ACUTE LYMPHOCYTIC LEUKAEMIA
     Dates: start: 20050209, end: 20050307
  6. CYCLOPHOSPHAMIDE [Suspect]
     Indication: ACUTE LYMPHOCYTIC LEUKAEMIA
     Dates: start: 20050209, end: 20050307
  7. PIP/TAZO [Suspect]
     Dates: start: 20050212, end: 20050304
  8. VORICONAZOLE [Suspect]
     Indication: ASPERGILLOSIS
     Dates: start: 20050220, end: 20050308
  9. VALACYCLOVIR HCL [Suspect]
     Dates: start: 20050220, end: 20050308
  10. TORSEMIDE [Concomitant]
  11. NAVOBAN [Concomitant]
  12. COTRIMOXAZOLE [Concomitant]
  13. VFEND [Concomitant]
  14. FUNGIZONE [Concomitant]
  15. TAZOBAC [Concomitant]

REACTIONS (10)
  - BRONCHOPULMONARY ASPERGILLOSIS [None]
  - CHOLESTASIS [None]
  - COMA HEPATIC [None]
  - DRUG TOXICITY [None]
  - GASTROINTESTINAL HAEMORRHAGE [None]
  - HEPATIC ENCEPHALOPATHY [None]
  - HEPATIC STEATOSIS [None]
  - LIVER INJURY [None]
  - MULTI-ORGAN FAILURE [None]
  - RENAL FAILURE ACUTE [None]
